FAERS Safety Report 8421858-5 (Version None)
Quarter: 2012Q2

REPORT INFORMATION
  Report Type: 
  Country: None (occurrence: None)
  Receive Date: 20120608
  Receipt Date: 20120601
  Transmission Date: 20120825
  Serious: No
  Sender: FDA-Public Use
  Company Number: US-PFIZER INC-2012133126

PATIENT
  Sex: Male

DRUGS (8)
  1. ERYTHROMYCIN [Suspect]
     Dosage: UNK
  2. TORADOL [Suspect]
     Dosage: UNK
  3. KEFLEX [Suspect]
     Dosage: UNK
  4. CECLOR [Suspect]
     Dosage: UNK
  5. PENICILLIN G POTASSIUM [Suspect]
     Dosage: UNK
  6. LEVAQUIN [Suspect]
     Dosage: UNK
  7. ALLEGRA-D 12 HOUR [Suspect]
     Dosage: UNK
  8. SEPTRA DS [Suspect]
     Dosage: UNK

REACTIONS (1)
  - DRUG HYPERSENSITIVITY [None]
